FAERS Safety Report 9917528 (Version 1)
Quarter: 2014Q1

REPORT INFORMATION
  Report Type: Spontaneous
  Country: US (occurrence: US)
  Receive Date: 20140221
  Receipt Date: 20140221
  Transmission Date: 20141002
  Serious: Yes (Hospitalization)
  Sender: FDA-Public Use
  Company Number: US-TEVA-463645USA

PATIENT
  Sex: Male
  Weight: 49.94 kg

DRUGS (2)
  1. DULOXETINE [Suspect]
     Dosage: 40 MILLIGRAM DAILY;
  2. QUETIAPINE FUMARATE [Suspect]

REACTIONS (4)
  - Psychomotor hyperactivity [Unknown]
  - Dizziness [Unknown]
  - Feeling abnormal [Unknown]
  - Abnormal behaviour [Unknown]
